FAERS Safety Report 10606002 (Version 1)
Quarter: 2014Q4

REPORT INFORMATION
  Report Type: Spontaneous
  Country: US (occurrence: US)
  Receive Date: 20141125
  Receipt Date: 20141125
  Transmission Date: 20150529
  Serious: No
  Sender: FDA-Public Use
  Company Number: US-BIOGENIDEC-2014BI120979

PATIENT
  Age: 57 Year
  Sex: Female

DRUGS (1)
  1. TECFIDERA [Suspect]
     Active Substance: DIMETHYL FUMARATE
     Indication: MULTIPLE SCLEROSIS
     Route: 048
     Dates: start: 20141020, end: 20141111

REACTIONS (17)
  - Feeding disorder [Not Recovered/Not Resolved]
  - Musculoskeletal disorder [Unknown]
  - Abdominal discomfort [Unknown]
  - Headache [Unknown]
  - Dyspepsia [Unknown]
  - Mental impairment [Not Recovered/Not Resolved]
  - Vision blurred [Unknown]
  - Hypoaesthesia [Unknown]
  - Nausea [Not Recovered/Not Resolved]
  - Gastrointestinal pain [Unknown]
  - Vomiting [Unknown]
  - Abdominal pain upper [Not Recovered/Not Resolved]
  - Mobility decreased [Not Recovered/Not Resolved]
  - Musculoskeletal chest pain [Unknown]
  - Multiple sclerosis [Recovered/Resolved]
  - Balance disorder [Unknown]
  - Sleep disorder [Unknown]

NARRATIVE: CASE EVENT DATE: 20141020
